FAERS Safety Report 7690008-5 (Version None)
Quarter: 2011Q3

REPORT INFORMATION
  Report Type: 
  Country: None (occurrence: None)
  Receive Date: 20110818
  Receipt Date: 20110812
  Transmission Date: 20111222
  Serious: Yes (Hospitalization)
  Sender: FDA-Public Use
  Company Number: AU-BRISTOL-MYERS SQUIBB COMPANY-15835549

PATIENT
  Age: 61 Year
  Sex: Female
  Weight: 72 kg

DRUGS (17)
  1. REFRESH TEARS [Concomitant]
     Dosage: EYE DROPS
  2. NITROLINGUAL [Concomitant]
     Indication: CHEST PAIN
  3. MAGNESIUM SULFATE [Concomitant]
  4. LEUCOVORIN CALCIUM [Concomitant]
     Dosage: TABLET
  5. VITAMIN D [Concomitant]
  6. DOCUSATE SODIUM + SENNA [Concomitant]
  7. LIPITOR [Concomitant]
     Dosage: 1DF=20MG TABLET
  8. COLOXYL + SENNA [Concomitant]
     Dosage: 1DF=50MG+8MG TABLET
  9. KARVEA [Suspect]
     Dosage: FOR 10 YEARS
     Dates: start: 20010101
  10. NITRO-DUR [Concomitant]
     Dosage: 5MG/24HRS PATCH
  11. PANTOPRAZOLE [Concomitant]
     Dosage: 1DF=40MG TABLET
  12. CARDIZEM [Suspect]
     Dosage: FOR 2 YEARS;60MG TABLET
     Dates: start: 20090101
  13. DILTIAZEM HCL [Concomitant]
     Dosage: 180MG CAPSULE
  14. SYSTANE [Concomitant]
     Dosage: 1-2DROPS
  15. OSTELIN [Concomitant]
  16. VITAMIN E [Concomitant]
  17. MELATONIN [Concomitant]

REACTIONS (5)
  - DYSURIA [None]
  - PALPITATIONS [None]
  - INSOMNIA [None]
  - MALAISE [None]
  - RENAL PAIN [None]
